FAERS Safety Report 18707647 (Version 4)
Quarter: 2021Q3

REPORT INFORMATION
  Report Type: Spontaneous
  Country: US (occurrence: US)
  Receive Date: 20210106
  Receipt Date: 20210715
  Transmission Date: 20211014
  Serious: No
  Sender: FDA-Public Use
  Company Number: US-PFIZER INC-2021001516

PATIENT
  Age: 60 Year
  Sex: Male
  Weight: 82.09 kg

DRUGS (8)
  1. INLYTA [Suspect]
     Active Substance: AXITINIB
     Indication: RENAL CELL CARCINOMA
     Dosage: 5 MG, 2X/DAY
     Route: 048
     Dates: start: 20201220
  2. IMODIUM [Concomitant]
     Active Substance: LOPERAMIDE HYDROCHLORIDE
     Dosage: UNK
  3. PANTOPRAZOLE SODIUM. [Concomitant]
     Active Substance: PANTOPRAZOLE SODIUM
     Dosage: UNK
  4. KEYTRUDA [Concomitant]
     Active Substance: PEMBROLIZUMAB
     Dosage: UNK (100MG/4ML VIAL)
  5. INLYTA [Suspect]
     Active Substance: AXITINIB
     Indication: ILLNESS
     Dosage: 5 MG, 2X/DAY
     Route: 048
     Dates: start: 20201220
  6. VITAMIN D3 [Concomitant]
     Active Substance: CHOLECALCIFEROL
     Dosage: UNK
  7. LEVOTHYROXINE. [Concomitant]
     Active Substance: LEVOTHYROXINE
     Dosage: UNK
  8. LISINOPRIL. [Concomitant]
     Active Substance: LISINOPRIL
     Dosage: UNK

REACTIONS (16)
  - Hypertension [Unknown]
  - Fatigue [Unknown]
  - Dry mouth [Unknown]
  - Depressed mood [Unknown]
  - Hepatic enzyme increased [Unknown]
  - Epistaxis [Unknown]
  - Dry throat [Unknown]
  - Oropharyngeal pain [Unknown]
  - Dehydration [Unknown]
  - Dyspnoea [Unknown]
  - Visual impairment [Unknown]
  - Dysphonia [Unknown]
  - Burning sensation [Unknown]
  - Arthralgia [Unknown]
  - Diarrhoea [Recovering/Resolving]
  - Tongue discomfort [Unknown]
